FAERS Safety Report 7718187-1 (Version None)
Quarter: 2011Q3

REPORT INFORMATION
  Report Type: 
  Country: None (occurrence: None)
  Receive Date: 20110830
  Receipt Date: 20110818
  Transmission Date: 20111222
  Serious: Yes (Other)
  Sender: FDA-Public Use
  Company Number: PHHY2011JP74913

PATIENT
  Sex: Female

DRUGS (2)
  1. HYPNOTICS AND SEDATIVES [Concomitant]
     Dosage: UNK UKN, UNK
  2. RITALIN [Suspect]
     Dosage: UNK UKN, UNK

REACTIONS (8)
  - DEPRESSED MOOD [None]
  - IRRITABILITY [None]
  - HYPERPHAGIA [None]
  - PREMENSTRUAL SYNDROME [None]
  - PALPITATIONS [None]
  - MEMORY IMPAIRMENT [None]
  - DISCOMFORT [None]
  - INSOMNIA [None]
